FAERS Safety Report 10219824 (Version 1)
Quarter: 2014Q2

REPORT INFORMATION
  Report Type: Spontaneous
  Country: US (occurrence: None)
  Receive Date: 20140604
  Receipt Date: 20140604
  Transmission Date: 20141212
  Serious: Yes (Hospitalization)
  Sender: FDA-Public Use
  Company Number: None

PATIENT
  Age: 62 Year
  Sex: Male
  Weight: 98 kg

DRUGS (1)
  1. RITUXIMAB [Suspect]

REACTIONS (9)
  - Pyrexia [None]
  - Chills [None]
  - Leukopenia [None]
  - Tick-borne fever [None]
  - Headache [None]
  - Infection reactivation [None]
  - Lymphoma [None]
  - Viral infection [None]
  - Transaminases abnormal [None]
